FAERS Safety Report 16030994 (Version 1)
Quarter: 2019Q1

REPORT INFORMATION
  Report Type: Spontaneous
  Country: US (occurrence: US)
  Receive Date: 20190304
  Receipt Date: 20190304
  Transmission Date: 20190418
  Serious: No
  Sender: FDA-Public Use
  Company Number: US-PFIZER INC-2019089548

PATIENT
  Age: 14 Year
  Sex: Male

DRUGS (3)
  1. GENOTROPIN [Suspect]
     Active Substance: SOMATROPIN
     Dosage: 2.8 MG, ALTERNATE DAY [ALTERNATING 2.8MG WITH 3MG, 6 DAYS A WEEK]
  2. GENOTROPIN [Suspect]
     Active Substance: SOMATROPIN
     Dosage: 3 MG, ALTERNATE DAY [ALTERNATING 2.8MG WITH 3MG, 6 DAYS A WEEK]
  3. GENOTROPIN [Suspect]
     Active Substance: SOMATROPIN
     Dosage: UNK [DOSE WAS DECREASED]

REACTIONS (3)
  - Product dose omission [Unknown]
  - Arthralgia [Unknown]
  - Insulin-like growth factor increased [Unknown]
